FAERS Safety Report 8474298-7 (Version None)
Quarter: 2012Q2

REPORT INFORMATION
  Report Type: 
  Country: None (occurrence: None)
  Receive Date: 20120628
  Receipt Date: 20120619
  Transmission Date: 20120825
  Serious: Yes (Hospitalization)
  Sender: FDA-Public Use
  Company Number: US-BAYER-2012-060589

PATIENT
  Age: 41 Year
  Sex: Female
  Weight: 68.027 kg

DRUGS (4)
  1. VITAMIN D [Concomitant]
     Dosage: 10000/ DAILY
     Route: 048
  2. IBUPROFEN (ADVIL) [Concomitant]
  3. IRON SULFATETHIAMIN COMPOUND TAB [Concomitant]
  4. YAZ [Suspect]
     Indication: ACNE
     Dosage: UNK
     Dates: start: 20100401, end: 20100503

REACTIONS (9)
  - DYSPNOEA [None]
  - TACHYCARDIA [None]
  - PAIN IN EXTREMITY [None]
  - INJURY [None]
  - CHEST PAIN [None]
  - DYSPNOEA EXERTIONAL [None]
  - PULMONARY EMBOLISM [None]
  - PAIN [None]
  - MENTAL DISORDER [None]
